FAERS Safety Report 22183871 (Version 1)
Quarter: 2023Q2

REPORT INFORMATION
  Report Type: Report from Study
  Country: US (occurrence: US)
  Receive Date: 20230406
  Receipt Date: 20230406
  Transmission Date: 20230722
  Serious: Yes (Hospitalization, Other)
  Sender: FDA-Public Use
  Company Number: US-ABBVIE-4343114

PATIENT
  Age: 71 Year
  Sex: Male

DRUGS (2)
  1. IMBRUVICA [Suspect]
     Active Substance: IBRUTINIB
     Indication: Extranodal marginal zone B-cell lymphoma (MALT type)
     Dosage: STRENGTH:560 MG MILLIGRAM
     Route: 048
     Dates: start: 20200221
  2. IMBRUVICA [Suspect]
     Active Substance: IBRUTINIB
     Indication: Extranodal marginal zone B-cell lymphoma (MALT type)
     Dosage: STRENGTH:560 MG MILLIGRAM
     Route: 048

REACTIONS (2)
  - Vascular stent insertion [Unknown]
  - Delirium [Unknown]

NARRATIVE: CASE EVENT DATE: 20230301
